FAERS Safety Report 8477260-3 (Version None)
Quarter: 2012Q2

REPORT INFORMATION
  Report Type: 
  Country: None (occurrence: None)
  Receive Date: 20120629
  Receipt Date: 20120621
  Transmission Date: 20120825
  Serious: Yes (Other)
  Sender: FDA-Public Use
  Company Number: GB-UCBSA-056758

PATIENT
  Age: 18 Year
  Sex: Male
  Weight: 80 kg

DRUGS (4)
  1. VIGABATRIN [Concomitant]
     Indication: EPILEPSY
     Dosage: 1000 MG TWICE DAILY AT AM + 500 MG TWICE DAILY AT PM
     Route: 048
  2. VIMPAT [Suspect]
     Indication: EPILEPSY
     Route: 048
     Dates: start: 20120404, end: 20120406
  3. CLOBAZAM [Concomitant]
     Indication: EPILEPSY
     Route: 048
  4. LAMOTRIGINE [Concomitant]
     Indication: EPILEPSY
     Route: 048

REACTIONS (5)
  - SWELLING FACE [None]
  - LIP SWELLING [None]
  - OEDEMA MOUTH [None]
  - OEDEMA PERIPHERAL [None]
  - SWOLLEN TONGUE [None]
